FAERS Safety Report 9642916 (Version 4)
Quarter: 2014Q1

REPORT INFORMATION
  Report Type: Spontaneous
  Country: DE (occurrence: DE)
  Receive Date: 20131024
  Receipt Date: 20140306
  Transmission Date: 20141002
  Serious: Yes (Death, Other)
  Sender: FDA-Public Use
  Company Number: PHHY2013DE045763

PATIENT
  Sex: Male

DRUGS (1)
  1. ZOMETA [Suspect]
     Indication: METASTASES TO BONE
     Dosage: UNK UKN, UNK
     Route: 041

REACTIONS (5)
  - Pulmonary embolism [Fatal]
  - Prostate cancer [Unknown]
  - Malignant neoplasm progression [Unknown]
  - Back pain [Unknown]
  - Bone pain [Unknown]
